FAERS Safety Report 20599811 (Version 5)
Quarter: 2022Q2

REPORT INFORMATION
  Report Type: Report from Study
  Country: CA (occurrence: CA)
  Receive Date: 20220316
  Receipt Date: 20220620
  Transmission Date: 20220721
  Serious: Yes (Death, Hospitalization, Other)
  Sender: FDA-Public Use
  Company Number: CA-Taiho Oncology Inc-EU-2021-02535

PATIENT
  Age: 84 Year
  Sex: Female
  Weight: 107.2 kg

DRUGS (1)
  1. LONSURF [Suspect]
     Active Substance: TIPIRACIL HYDROCHLORIDE\TRIFLURIDINE
     Indication: Colorectal cancer metastatic
     Dosage: CURRENT CYCLE UNKNOWN
     Route: 048
     Dates: start: 20210803

REACTIONS (16)
  - Death [Fatal]
  - Malaise [Unknown]
  - Haemoptysis [Unknown]
  - Cerebrovascular accident [Unknown]
  - Pneumonia [Unknown]
  - Hyperhidrosis [Not Recovered/Not Resolved]
  - Hypersomnia [Unknown]
  - Cough [Recovering/Resolving]
  - Abdominal discomfort [Unknown]
  - Fatigue [Unknown]
  - Frequent bowel movements [Recovering/Resolving]
  - Nausea [Unknown]
  - Diarrhoea [Unknown]
  - Anaemia [Unknown]
  - Asthenia [Unknown]
  - Treatment noncompliance [Not Recovered/Not Resolved]

NARRATIVE: CASE EVENT DATE: 20210803
